FAERS Safety Report 23517733 (Version 1)
Quarter: 2024Q1

REPORT INFORMATION
  Report Type: Spontaneous
  Country: US (occurrence: US)
  Receive Date: 20240213
  Receipt Date: 20240213
  Transmission Date: 20240410
  Serious: No
  Sender: FDA-Public Use
  Company Number: US-INSUD PHARMA-2401US00793

PATIENT

DRUGS (2)
  1. SLYND [Suspect]
     Active Substance: DROSPIRENONE
     Indication: Product used for unknown indication
     Dosage: UNK
  2. SLYND [Suspect]
     Active Substance: DROSPIRENONE
     Dosage: UNK

REACTIONS (2)
  - Illness [Recovered/Resolved]
  - Intentional dose omission [Unknown]
